FAERS Safety Report 18397713 (Version 1)
Quarter: 2020Q4

REPORT INFORMATION
  Report Type: Spontaneous
  Country: US (occurrence: US)
  Receive Date: 20201017
  Receipt Date: 20201017
  Transmission Date: 20210114
  Serious: Yes (Other)
  Sender: FDA-Public Use
  Company Number: None

PATIENT
  Age: 31 Year
  Sex: Female
  Weight: 72.57 kg

DRUGS (1)
  1. PARAGARD T 380A [Suspect]
     Active Substance: COPPER
     Dates: start: 20150601, end: 20180302

REACTIONS (8)
  - Alopecia [None]
  - Weight increased [None]
  - Suicidal ideation [None]
  - Mental disorder [None]
  - Anxiety [None]
  - Photosensitivity reaction [None]
  - Abdominal distension [None]
  - Nervousness [None]

NARRATIVE: CASE EVENT DATE: 20150601
